FAERS Safety Report 23728783 (Version 1)
Quarter: 2024Q2

REPORT INFORMATION
  Report Type: Spontaneous
  Country: CA (occurrence: CA)
  Receive Date: 20240410
  Receipt Date: 20240410
  Transmission Date: 20240716
  Serious: Yes (Life-Threatening)
  Sender: FDA-Public Use
  Company Number: CA-TEVA-VS-3179860

PATIENT
  Age: 72 Year
  Sex: Male
  Weight: 73 kg

DRUGS (20)
  1. BISOPROLOL [Suspect]
     Active Substance: BISOPROLOL\BISOPROLOL FUMARATE
     Indication: Hypertension
     Route: 048
  2. CEFTRIAXONE [Concomitant]
     Active Substance: CEFTRIAXONE\CEFTRIAXONE SODIUM
     Dosage: FOR INJECTION USP, DOSAGE FORM: POWDER FOR SOLUTION INTRAMUSCULAR
     Route: 065
  3. DEXAMETHASONE [Concomitant]
     Active Substance: DEXAMETHASONE
     Route: 065
  4. DEXLANSOPRAZOLE [Concomitant]
     Active Substance: DEXLANSOPRAZOLE
     Dosage: DELAYED RELEASE
     Route: 065
  5. DOXYCYCLINE [Concomitant]
     Active Substance: DOXYCYCLINE
     Route: 065
  6. ENOXAPARIN [Concomitant]
     Active Substance: ENOXAPARIN
     Route: 065
  7. HALOPERIDOL [Concomitant]
     Active Substance: HALOPERIDOL
     Dosage: DOSAGE FORM: LIQUID INTRAMUSCULAR
     Route: 065
  8. LOPERAMIDE [Concomitant]
     Active Substance: LOPERAMIDE
     Route: 065
  9. LORAZEPAM [Concomitant]
     Active Substance: LORAZEPAM
     Route: 065
  10. MAGNESIUM OXIDE [Concomitant]
     Active Substance: MAGNESIUM OXIDE
     Route: 065
  11. OLUMIANT [Concomitant]
     Active Substance: BARICITINIB
     Route: 065
  12. POLYETHYLENE GLYCOL [Concomitant]
     Active Substance: POLYETHYLENE GLYCOL
     Route: 065
  13. SERTRALINE [Concomitant]
     Active Substance: SERTRALINE HYDROCHLORIDE
     Route: 065
  14. VITAMIN B [Concomitant]
     Active Substance: VITAMIN B
     Route: 065
  15. VITAMIN D [Concomitant]
     Active Substance: VITAMIN D NOS
     Route: 065
  16. VITAMIN K [Concomitant]
     Active Substance: PHYTONADIONE
     Route: 065
  17. VEKLURY [Suspect]
     Active Substance: REMDESIVIR
     Indication: COVID-19
     Dosage: SINGLE-DOSE VIAL, DOSAGE FORM: POWDER FOR SOLUTION INTRAVENOUS
     Route: 058
  18. ACETAMINOPHEN [Concomitant]
     Active Substance: ACETAMINOPHEN
     Route: 065
  19. ASPIRIN [Concomitant]
     Active Substance: ASPIRIN
     Route: 065
  20. ATORVASTATIN [Concomitant]
     Active Substance: ATORVASTATIN
     Route: 065

REACTIONS (4)
  - Atrioventricular block second degree [Recovered/Resolved]
  - Bradycardia [Recovered/Resolved]
  - Electrocardiogram QT prolonged [Recovered/Resolved]
  - Liver function test abnormal [Recovered/Resolved]
